FAERS Safety Report 13039048 (Version 4)
Quarter: 2017Q1

REPORT INFORMATION
  Report Type: Spontaneous
  Country: DE (occurrence: DE)
  Receive Date: 20161219
  Receipt Date: 20170123
  Transmission Date: 20170428
  Serious: Yes (Other)
  Sender: FDA-Public Use
  Company Number: DE-ROCHE-1869039

PATIENT
  Sex: Female
  Weight: 71 kg

DRUGS (7)
  1. PEMETREXED [Concomitant]
     Active Substance: PEMETREXED
     Indication: BRONCHIAL CARCINOMA
     Dosage: 6 CYCLES IN TOTAL
     Route: 042
     Dates: start: 201111, end: 201202
  2. CISPLATIN. [Concomitant]
     Active Substance: CISPLATIN
     Indication: NON-SMALL CELL LUNG CANCER
  3. AVASTIN [Suspect]
     Active Substance: BEVACIZUMAB
     Indication: NON-SMALL CELL LUNG CANCER
     Dosage: COMBINATION THERAPY
     Route: 042
     Dates: start: 201112, end: 201202
  4. PEMETREXED [Concomitant]
     Active Substance: PEMETREXED
     Indication: NON-SMALL CELL LUNG CANCER
  5. AVASTIN [Suspect]
     Active Substance: BEVACIZUMAB
     Dosage: MAINTENANCE THERAPY
     Route: 042
     Dates: start: 201111, end: 201604
  6. AVASTIN [Suspect]
     Active Substance: BEVACIZUMAB
     Indication: BRONCHIAL CARCINOMA
     Dosage: MAINTENANCE THERAPY
     Route: 042
     Dates: start: 201202, end: 201507
  7. CISPLATIN. [Concomitant]
     Active Substance: CISPLATIN
     Indication: BRONCHIAL CARCINOMA
     Dosage: 6 CYCLES IN TOTAL
     Route: 042
     Dates: start: 201111, end: 201202

REACTIONS (8)
  - Myalgia [Unknown]
  - Palmar erythema [Unknown]
  - Hypertension [Unknown]
  - Pain [Unknown]
  - Limb discomfort [Unknown]
  - Fatigue [Unknown]
  - Respiratory failure [Recovering/Resolving]
  - Left ventricular failure [Unknown]

NARRATIVE: CASE EVENT DATE: 201401
